FAERS Safety Report 6160158-3 (Version None)
Quarter: 2009Q2

REPORT INFORMATION
  Report Type: 
  Country: None (occurrence: None)
  Receive Date: 20090420
  Receipt Date: 20090413
  Transmission Date: 20091009
  Serious: Yes (Death)
  Sender: FDA-Public Use
  Company Number: A0775958A

PATIENT
  Age: 55 Year
  Sex: Male
  Weight: 72.3 kg

DRUGS (2)
  1. ZOFRAN [Suspect]
     Indication: DRUG USE FOR UNKNOWN INDICATION
     Dosage: 8MG UNKNOWN
     Route: 065
  2. CHEMOTHERAPY [Concomitant]

REACTIONS (2)
  - DISEASE PROGRESSION [None]
  - OESOPHAGEAL CARCINOMA [None]
